FAERS Safety Report 5196743-5 (Version None)
Quarter: 2006Q4

REPORT INFORMATION
  Report Type: 
  Country: None (occurrence: None)
  Receive Date: 20061227
  Receipt Date: 20061212
  Transmission Date: 20070319
  Serious: Yes (Other)
  Sender: FDA-Public Use
  Company Number: 2006150111

PATIENT
  Sex: Female

DRUGS (2)
  1. LYRICA [Suspect]
     Dosage: 75 MG (75 MG, 1 IN 1 TOTAL)
     Dates: start: 20061130, end: 20061130
  2. EPIDEN (EPINEPHRINE) [Concomitant]

REACTIONS (1)
  - ANAPHYLACTIC REACTION [None]
